FAERS Safety Report 9955352 (Version 1)
Quarter: 2014Q1

REPORT INFORMATION
  Report Type: Report from Study
  Country: US (occurrence: US)
  Receive Date: 20140304
  Receipt Date: 20140304
  Transmission Date: 20141002
  Serious: No
  Sender: FDA-Public Use
  Company Number: US-ABBVIE-13P-163-1080031-00

PATIENT
  Age: 37 Year
  Sex: Male

DRUGS (3)
  1. HUMIRA [Suspect]
     Indication: COLITIS ULCERATIVE
  2. TESTOSTERONE [Concomitant]
     Indication: PRODUCT USED FOR UNKNOWN INDICATION
  3. IBUPROFEN [Concomitant]
     Indication: PRODUCT USED FOR UNKNOWN INDICATION
     Dosage: AS NEEDED

REACTIONS (11)
  - Respiratory tract congestion [Not Recovered/Not Resolved]
  - Dysphonia [Not Recovered/Not Resolved]
  - Increased upper airway secretion [Not Recovered/Not Resolved]
  - Productive cough [Not Recovered/Not Resolved]
  - Myalgia [Not Recovered/Not Resolved]
  - Painful respiration [Not Recovered/Not Resolved]
  - Pain [Not Recovered/Not Resolved]
  - Chest discomfort [Unknown]
  - Chest discomfort [Unknown]
  - Dyspnoea [Unknown]
  - Dyspnoea [Unknown]
